FAERS Safety Report 13206328 (Version 1)
Quarter: 2017Q1

REPORT INFORMATION
  Report Type: Spontaneous
  Country: US (occurrence: US)
  Receive Date: 20170209
  Receipt Date: 20170209
  Transmission Date: 20170428
  Serious: No
  Sender: FDA-Public Use
  Company Number: US-SA-2016SA197208

PATIENT
  Age: 70 Year
  Sex: Female

DRUGS (10)
  1. GARLIC. [Concomitant]
     Active Substance: GARLIC
  2. VITAMIN B COMPLEX [Concomitant]
     Active Substance: CYANOCOBALAMIN\DEXPANTHENOL\NIACINAMIDE\PYRIDOXINE HYDROCHLORIDE\RIBOFLAVIN 5^-PHOSPHATE SODIUM\THIAMINE HYDROCHLORIDE\VITAMIN B COMPLEX
  3. ALIROCUMAB PREFILLED PEN [Concomitant]
     Active Substance: ALIROCUMAB
     Indication: TYPE V HYPERLIPIDAEMIA
     Dates: start: 20161011
  4. LANTUS [Concomitant]
     Active Substance: INSULIN GLARGINE
  5. VITAMIN D [Concomitant]
     Active Substance: CHOLECALCIFEROL
  6. FISH OIL [Concomitant]
     Active Substance: FISH OIL
  7. GINKGO BILOBA [Concomitant]
     Active Substance: GINKGO
  8. HUMALOG [Concomitant]
     Active Substance: INSULIN LISPRO
  9. PRALUENT [Suspect]
     Active Substance: ALIROCUMAB
     Indication: TYPE V HYPERLIPIDAEMIA
     Route: 065
     Dates: start: 20161004
  10. COENZYME Q10 [Concomitant]
     Active Substance: UBIDECARENONE

REACTIONS (5)
  - Coordination abnormal [Unknown]
  - Myalgia [Recovered/Resolved]
  - Pyrexia [Recovered/Resolved]
  - Blood glucose decreased [Recovered/Resolved]
  - Feeling abnormal [Recovered/Resolved]

NARRATIVE: CASE EVENT DATE: 20161016
